FAERS Safety Report 6596537-X (Version None)
Quarter: 2010Q1

REPORT INFORMATION
  Report Type: 
  Country: None (occurrence: None)
  Receive Date: 20100212
  Receipt Date: 20100118
  Transmission Date: 20100710
  Serious: No
  Sender: FDA-Public Use
  Company Number: 2010-00059

PATIENT
  Age: 66 Year
  Sex: Male
  Weight: 81.6475 kg

DRUGS (4)
  1. ZICAM COLD REMEDY GEL SWABS [Suspect]
     Dosage: QD, ONE DOSE; 4-5 MONTHS AGO
  2. KLONOPIN [Concomitant]
  3. ^SOMETHING FOR HIGH BLOOD PRESSURE^ [Concomitant]
  4. LOVASTATIN [Concomitant]

REACTIONS (2)
  - ANOSMIA [None]
  - NASAL DISCOMFORT [None]
